FAERS Safety Report 6248843-6 (Version None)
Quarter: 2009Q2

REPORT INFORMATION
  Report Type: 
  Country: None (occurrence: None)
  Receive Date: 20090624
  Receipt Date: 20090609
  Transmission Date: 20091009
  Serious: Yes (Hospitalization, Other)
  Sender: FDA-Public Use
  Company Number: 2008US001372

PATIENT
  Age: 34 Year
  Sex: Female
  Weight: 97.5 kg

DRUGS (1)
  1. PROTOPIC [Suspect]
     Indication: ECZEMA
     Dosage: 0.1 %, BID, TOPICAL
     Route: 061
     Dates: start: 20020305, end: 20040202

REACTIONS (20)
  - ABASIA [None]
  - ABDOMINAL PAIN [None]
  - ANOREXIA [None]
  - APLASTIC ANAEMIA [None]
  - BACK PAIN [None]
  - DEHYDRATION [None]
  - DEPRESSION [None]
  - HODGKIN'S DISEASE NODULAR SCLEROSIS STAGE III [None]
  - MARROW HYPERPLASIA [None]
  - MASS [None]
  - MEGAKARYOCYTES INCREASED [None]
  - METASTASES TO BONE [None]
  - NAUSEA [None]
  - NEUTROPENIA [None]
  - NIGHT SWEATS [None]
  - PLASMA CELLS PRESENT [None]
  - PRURITUS [None]
  - SICKLE CELL ANAEMIA [None]
  - VOMITING [None]
  - WEIGHT DECREASED [None]
